FAERS Safety Report 8216327 (Version 3)
Quarter: 2014Q2

REPORT INFORMATION
  Report Type: Spontaneous
  Country: JP (occurrence: JP)
  Receive Date: 20111031
  Receipt Date: 20140620
  Transmission Date: 20141212
  Serious: Yes (Life-Threatening, Hospitalization)
  Sender: FDA-Public Use
  Company Number: JP-B.I. PHARMACEUTICALS,INC./RIDGEFIELD-2011-BP-24051NB

PATIENT
  Age: 83 Year
  Sex: Male
  Weight: 60 kg

DRUGS (13)
  1. PRAZAXA [Suspect]
     Indication: ATRIAL FIBRILLATION
     Dosage: 220 MG
     Route: 048
     Dates: start: 201104
  2. CASODEX [Concomitant]
     Indication: PROSTATE CANCER
     Dosage: 80 MG
     Route: 048
  3. ZYLORIC [Concomitant]
     Dosage: 100 MG
     Route: 048
  4. KREMEZIN [Concomitant]
     Indication: RENAL FAILURE CHRONIC
     Dosage: 4 G
     Route: 048
  5. URSO [Concomitant]
     Indication: HEPATITIS C
     Dosage: 300 MG
     Route: 048
  6. GASTROM [Concomitant]
     Dosage: 3 G
     Route: 048
  7. ALDACTONE A [Concomitant]
     Indication: CARDIAC FAILURE CHRONIC
     Dosage: 25 MG
     Route: 048
  8. LASIX [Concomitant]
     Indication: CARDIAC FAILURE CHRONIC
     Dosage: 20 MG
     Route: 048
  9. BLOPRESS [Concomitant]
     Dosage: 8 MG
     Route: 048
  10. ADALAT-CR [Concomitant]
     Dosage: 40 MG
     Route: 048
  11. HALCION [Concomitant]
     Indication: INSOMNIA
     Route: 048
  12. SG [Concomitant]
     Indication: HEADACHE
     Route: 048
  13. NITRODERM TTS [Concomitant]
     Dosage: 25 MG
     Route: 062

REACTIONS (2)
  - Subdural haematoma [Not Recovered/Not Resolved]
  - Brain herniation [Not Recovered/Not Resolved]
